FAERS Safety Report 7537404-4 (Version None)
Quarter: 2011Q2

REPORT INFORMATION
  Report Type: 
  Country: None (occurrence: None)
  Receive Date: 20110609
  Receipt Date: 20110531
  Transmission Date: 20111010
  Serious: Yes (Other)
  Sender: FDA-Public Use
  Company Number: US-BAYER-2011-012047

PATIENT
  Age: 16 Year
  Sex: Female

DRUGS (2)
  1. EPIDUO GEL [Concomitant]
     Indication: ACNE
  2. YAZ [Suspect]
     Indication: ACNE
     Dosage: UNK
     Dates: start: 20080101

REACTIONS (3)
  - BREAST ENLARGEMENT [None]
  - EMOTIONAL DISTRESS [None]
  - PAIN [None]
